FAERS Safety Report 12613427 (Version 1)
Quarter: 2016Q3

REPORT INFORMATION
  Report Type: Spontaneous
  Country: US (occurrence: None)
  Receive Date: 20160801
  Receipt Date: 20160801
  Transmission Date: 20161109
  Serious: Yes (Disabling)
  Sender: FDA-Public Use
  Company Number: None

PATIENT
  Age: 22 Year
  Sex: Female
  Weight: 120.2 kg

DRUGS (5)
  1. OMEPRAZOLE. [Concomitant]
     Active Substance: OMEPRAZOLE
  2. NEXPLANON [Suspect]
     Active Substance: ETONOGESTREL
  3. CYMBLTA [Concomitant]
  4. POTASSIUM [Concomitant]
     Active Substance: POTASSIUM
  5. SYNTHROID [Concomitant]
     Active Substance: LEVOTHYROXINE SODIUM

REACTIONS (6)
  - Ovarian cyst [None]
  - Headache [None]
  - Abdominal pain [None]
  - Mood swings [None]
  - Weight increased [None]
  - Acne [None]

NARRATIVE: CASE EVENT DATE: 20160601
